FAERS Safety Report 21912130 (Version 1)
Quarter: 2023Q1

REPORT INFORMATION
  Report Type: Spontaneous
  Country: US (occurrence: US)
  Receive Date: 20230125
  Receipt Date: 20230125
  Transmission Date: 20230418
  Serious: No
  Sender: FDA-Public Use
  Company Number: US-ALLERGAN-2232045US

PATIENT
  Age: 16 Month
  Sex: Female

DRUGS (1)
  1. BOTOX COSMETIC [Suspect]
     Active Substance: ONABOTULINUMTOXINA
     Indication: Maternal exposure timing unspecified
     Dosage: UNK, SINGLE
     Route: 063

REACTIONS (2)
  - Maternal exposure during breast feeding [Unknown]
  - Vomiting [Unknown]

NARRATIVE: CASE EVENT DATE: 20220927
